FAERS Safety Report 8789502 (Version 1)
Quarter: 2012Q4

REPORT INFORMATION
  Report Type: Spontaneous
  Country: US (occurrence: None)
  Receive Date: 20120910
  Receipt Date: 20120910
  Transmission Date: 20130627
  Serious: Yes (Other)
  Sender: FDA-Public Use
  Company Number: None

PATIENT
  Age: 40 Year
  Sex: Female
  Weight: 102.06 kg

DRUGS (2)
  1. VENLAFAXINE [Suspect]
     Route: 048
     Dates: start: 20120102, end: 20120907
  2. METOPROLOL [Suspect]
     Route: 048
     Dates: start: 20120102, end: 20120907

REACTIONS (2)
  - Lethargy [None]
  - Somnolence [None]
